FAERS Safety Report 10255090 (Version 2)
Quarter: 2014Q3

REPORT INFORMATION
  Report Type: Spontaneous
  Country: US (occurrence: US)
  Receive Date: 20140624
  Receipt Date: 20140801
  Transmission Date: 20150326
  Serious: Yes (Other)
  Sender: FDA-Public Use
  Company Number: US-PFIZER INC-2014169096

PATIENT
  Age: 68 Year
  Sex: Male
  Weight: 114.83 kg

DRUGS (1)
  1. VIAGRA [Suspect]
     Active Substance: SILDENAFIL CITRATE
     Dosage: UNK

REACTIONS (4)
  - Ventricular fibrillation [Unknown]
  - Arrhythmia [Unknown]
  - Coronary artery disease [Unknown]
  - Hypertension [Unknown]
